FAERS Safety Report 21885945 (Version 1)
Quarter: 2023Q1

REPORT INFORMATION
  Report Type: Spontaneous
  Country: IR (occurrence: IR)
  Receive Date: 20230119
  Receipt Date: 20230119
  Transmission Date: 20230418
  Serious: Yes (Hospitalization, Other)
  Sender: FDA-Public Use
  Company Number: IR-STERISCIENCE B.V.-2023-ST-000087

PATIENT
  Age: 13 Year
  Sex: Male

DRUGS (6)
  1. MIDAZOLAM [Suspect]
     Active Substance: MIDAZOLAM
     Indication: Anaesthesia
     Dosage: 1 MILLIGRAM
     Route: 042
     Dates: start: 2019
  2. SEVOFLURANE [Suspect]
     Active Substance: SEVOFLURANE
     Indication: Anaesthesia
     Dosage: UNKNOWN
     Route: 065
     Dates: start: 2019
  3. FENTANYL [Suspect]
     Active Substance: FENTANYL
     Indication: Anaesthesia
     Dosage: 70 MICROGRAM
     Route: 042
     Dates: start: 2019
  4. LIDOCAINE [Suspect]
     Active Substance: LIDOCAINE
     Indication: Anaesthesia
     Dosage: 1CC
     Route: 042
     Dates: start: 2019
  5. PROPOFOL [Suspect]
     Active Substance: PROPOFOL
     Indication: Anaesthesia
     Dosage: 70 MILLIGRAM
     Route: 042
     Dates: start: 2019
  6. THIOPENTAL SODIUM [Suspect]
     Active Substance: THIOPENTAL SODIUM
     Indication: Anaesthesia
     Dosage: 125 MILLIGRAM
     Route: 042
     Dates: start: 2019

REACTIONS (2)
  - Guillain-Barre syndrome [None]
  - Condition aggravated [None]

NARRATIVE: CASE EVENT DATE: 20190101
